FAERS Safety Report 4708089-7 (Version None)
Quarter: 2005Q3

REPORT INFORMATION
  Report Type: 
  Country: None (occurrence: None)
  Receive Date: 20050707
  Receipt Date: 20050630
  Transmission Date: 20060218
  Serious: Yes (Life-Threatening, Hospitalization)
  Sender: FDA-Public Use
  Company Number: US-BRISTOL-MYERS SQUIBB COMPANY-13022223

PATIENT
  Sex: Male

DRUGS (1)
  1. ERBITUX [Suspect]
     Dosage: FIRST INFUSION

REACTIONS (3)
  - CARDIAC DISORDER [None]
  - INFUSION RELATED REACTION [None]
  - RESPIRATORY ARREST [None]
